FAERS Safety Report 10086654 (Version 1)
Quarter: 2014Q2

REPORT INFORMATION
  Report Type: Spontaneous
  Country: US (occurrence: None)
  Receive Date: 20140417
  Receipt Date: 20140417
  Transmission Date: 20141212
  Serious: Yes (Hospitalization)
  Sender: FDA-Public Use
  Company Number: None

PATIENT
  Age: 73 Year
  Sex: Female
  Weight: 72.58 kg

DRUGS (2)
  1. GABAPENTIN [Suspect]
     Indication: NEUROPATHY PERIPHERAL
     Dosage: 3 CAPSULES TID ORAL
     Route: 048
  2. GABAPENTIN [Suspect]
     Indication: CHEMOTHERAPY
     Dosage: 3 CAPSULES TID ORAL
     Route: 048

REACTIONS (3)
  - Drug withdrawal syndrome [None]
  - Communication disorder [None]
  - Movement disorder [None]
